FAERS Safety Report 21606215 (Version 3)
Quarter: 2023Q1

REPORT INFORMATION
  Report Type: Report from Study
  Country: US (occurrence: US)
  Receive Date: 20221117
  Receipt Date: 20230125
  Transmission Date: 20230417
  Serious: Yes (Other)
  Sender: FDA-Public Use
  Company Number: US-ABBVIE-4202539

PATIENT
  Sex: Male

DRUGS (1)
  1. SKYRIZI [Suspect]
     Active Substance: RISANKIZUMAB-RZAA
     Indication: Psoriasis
     Route: 058

REACTIONS (4)
  - Meniscus injury [Recovering/Resolving]
  - Psoriasis [Not Recovered/Not Resolved]
  - Therapeutic response shortened [Unknown]
  - Inguinal mass [Not Recovered/Not Resolved]
